FAERS Safety Report 7936791-2 (Version None)
Quarter: 2011Q4

REPORT INFORMATION
  Report Type: 
  Country: None (occurrence: None)
  Receive Date: 20111110
  Receipt Date: 20111102
  Transmission Date: 20120403
  Serious: Yes (Hospitalization)
  Sender: FDA-Public Use
  Company Number: 2011030228

PATIENT
  Sex: Female
  Weight: 176 kg

DRUGS (7)
  1. CYTOXAN [Concomitant]
  2. PRIVIGEN [Suspect]
  3. PRIVIGEN [Suspect]
  4. PRIVIGEN [Suspect]
     Indication: MULTIPLE SCLEROSIS
     Dosage: 400 MG/KG QD, FOR 5 DAYS INTRAVENOUS (1 G/KG FOR 2 MONTHS , 85 G TOTAL, 1 G/KG ;80 G TOTAL INTRAVENO
     Route: 042
     Dates: start: 20110621
  5. PRIVIGEN [Suspect]
     Indication: MULTIPLE SCLEROSIS
     Dosage: 400 MG/KG QD, FOR 5 DAYS INTRAVENOUS (1 G/KG FOR 2 MONTHS , 85 G TOTAL, 1 G/KG ;80 G TOTAL INTRAVENO
     Route: 042
     Dates: start: 20111031, end: 20111031
  6. PRIVIGEN [Suspect]
     Indication: MULTIPLE SCLEROSIS
     Dosage: 400 MG/KG QD, FOR 5 DAYS INTRAVENOUS (1 G/KG FOR 2 MONTHS , 85 G TOTAL, 1 G/KG ;80 G TOTAL INTRAVENO
     Route: 042
     Dates: start: 20110816, end: 20110816
  7. PRIVIGEN [Suspect]
     Indication: MULTIPLE SCLEROSIS
     Dosage: 400 MG/KG QD, FOR 5 DAYS INTRAVENOUS (1 G/KG FOR 2 MONTHS , 85 G TOTAL, 1 G/KG ;80 G TOTAL INTRAVENO
     Route: 042
     Dates: start: 20110620, end: 20110624

REACTIONS (4)
  - WEIGHT DECREASED [None]
  - CONVULSION [None]
  - TREATMENT NONCOMPLIANCE [None]
  - COMA [None]
